FAERS Safety Report 6713124-0 (Version None)
Quarter: 2010Q2

REPORT INFORMATION
  Report Type: 
  Country: None (occurrence: None)
  Receive Date: 20100506
  Receipt Date: 20090414
  Transmission Date: 20101027
  Serious: No
  Sender: FDA-Public Use
  Company Number: A0778741A

PATIENT
  Age: 40 Year
  Sex: Male

DRUGS (3)
  1. AMOXIL [Suspect]
     Indication: TOOTH INFECTION
     Dosage: 500MG THREE TIMES PER DAY
     Route: 048
     Dates: start: 20090223, end: 20090303
  2. TYLENOL W/ CODEINE [Concomitant]
  3. VICODIN [Concomitant]

REACTIONS (1)
  - DRUG SCREEN POSITIVE [None]
